FAERS Safety Report 25491815 (Version 1)
Quarter: 2025Q2

REPORT INFORMATION
  Report Type: Report from Study
  Country: EG (occurrence: EG)
  Receive Date: 20250630
  Receipt Date: 20250630
  Transmission Date: 20250717
  Serious: No
  Sender: SANDOZ
  Company Number: EG-SANDOZ-SDZ2023EG073295

PATIENT
  Age: 5 Year
  Sex: Male
  Weight: 25 kg

DRUGS (2)
  1. OMNITROPE [Suspect]
     Active Substance: SOMATROPIN
     Indication: Silver-Russell syndrome
     Route: 058
     Dates: start: 20170621
  2. OMNITROPE [Suspect]
     Active Substance: SOMATROPIN
     Indication: Growth hormone deficiency

REACTIONS (4)
  - Injection site pain [Not Recovered/Not Resolved]
  - Off label use [Unknown]
  - Drug administered in wrong device [Unknown]
  - Product substitution issue [Unknown]

NARRATIVE: CASE EVENT DATE: 20170621
